FAERS Safety Report 8343898-7 (Version None)
Quarter: 2012Q2

REPORT INFORMATION
  Report Type: 
  Country: None (occurrence: None)
  Receive Date: 20120508
  Receipt Date: 20100930
  Transmission Date: 20120825
  Serious: Yes (Hospitalization)
  Sender: FDA-Public Use
  Company Number: US-TEVA-2010004655

PATIENT
  Sex: Female
  Weight: 54.934 kg

DRUGS (6)
  1. PREDNISONE TAB [Concomitant]
     Dosage: 40 MILLIGRAM;
     Dates: start: 20100501
  2. BACTRIM [Suspect]
     Dates: start: 20100706
  3. TREANDA [Suspect]
     Indication: MANTLE CELL LYMPHOMA
     Route: 042
     Dates: start: 20100525, end: 20100617
  4. PREDNISONE TAB [Concomitant]
     Dates: start: 20100809
  5. ALLOPURINOL [Concomitant]
     Dates: end: 20100625
  6. TREANDA [Suspect]
     Route: 042
     Dates: start: 20100818, end: 20100818

REACTIONS (6)
  - PNEUMOCYSTIS JIROVECI PNEUMONIA [None]
  - RASH MACULO-PAPULAR [None]
  - GENITAL HERPES [None]
  - PYREXIA [None]
  - CHILLS [None]
  - RASH [None]
